FAERS Safety Report 6801300-8 (Version None)
Quarter: 2010Q2

REPORT INFORMATION
  Report Type: 
  Country: None (occurrence: None)
  Receive Date: 20100629
  Receipt Date: 20100623
  Transmission Date: 20101027
  Serious: Yes (Hospitalization, Other)
  Sender: FDA-Public Use
  Company Number: BR-ROCHE-681832

PATIENT
  Sex: Female
  Weight: 52 kg

DRUGS (14)
  1. TOCILIZUMAB [Suspect]
     Indication: RHEUMATOID ARTHRITIS
     Dosage: LAST DOSE PRIOR TO SAE: 28 DEC 2009, FREQUENCY:EVERY 4 WEEKS AS PER PROTOCOL.TEMPORARILY INTERRUPTED
     Route: 042
     Dates: start: 20091130, end: 20100125
  2. TOCILIZUMAB [Suspect]
     Route: 042
     Dates: start: 20100409
  3. BLINDED METHOTREXATE [Suspect]
     Indication: RHEUMATOID ARTHRITIS
     Dosage: LAST DOSE PRIOR TO SAE: 28 DEC 2009, TEMPORARILY INTERRUPTED
     Route: 048
     Dates: start: 20091130, end: 20100125
  4. BLINDED METHOTREXATE [Suspect]
     Route: 048
     Dates: start: 20100409
  5. METFORMIN HCL [Concomitant]
     Dates: start: 20050901
  6. ASPIRIN [Concomitant]
     Dates: start: 20100125
  7. CLOPIDOGREL [Concomitant]
     Dates: start: 20100125
  8. PRAVASTATIN [Concomitant]
     Dates: start: 20100125
  9. OMEPRAZOLE [Concomitant]
     Dates: start: 20060101
  10. ISONIAZID [Concomitant]
     Dates: start: 20091005
  11. VIT D3 [Concomitant]
     Dates: start: 20000601
  12. METOPROLOL [Concomitant]
     Dates: start: 20100125
  13. FOLIC ACID [Concomitant]
     Dates: start: 20061114
  14. CALCIUM CARBONATE [Concomitant]
     Dates: start: 20000601

REACTIONS (2)
  - ACUTE MYOCARDIAL INFARCTION [None]
  - CARDIOMYOPATHY [None]
